FAERS Safety Report 7380566-2 (Version None)
Quarter: 2011Q1

REPORT INFORMATION
  Report Type: 
  Country: None (occurrence: None)
  Receive Date: 20110325
  Receipt Date: 20110325
  Transmission Date: 20110831
  Serious: Yes (Life-Threatening)
  Sender: FDA-Public Use
  Company Number: None

PATIENT
  Sex: Female
  Weight: 70 kg

DRUGS (1)
  1. METHACHOLINE CHLORIDE [Suspect]
     Indication: DYSPNOEA
     Dosage: 2.5MG/ML ONE TIME OTHER
     Dates: start: 20100624, end: 20100624

REACTIONS (4)
  - DYSPHAGIA [None]
  - PARAESTHESIA ORAL [None]
  - PHARYNGEAL OEDEMA [None]
  - THROAT TIGHTNESS [None]
